FAERS Safety Report 18633232 (Version 1)
Quarter: 2020Q4

REPORT INFORMATION
  Report Type: Spontaneous
  Country: US (occurrence: US)
  Receive Date: 20201218
  Receipt Date: 20201218
  Transmission Date: 20210114
  Serious: No
  Sender: FDA-Public Use
  Company Number: US-REGENERON PHARMACEUTICALS, INC.-2019-74257

PATIENT

DRUGS (5)
  1. EYLEA [Suspect]
     Active Substance: AFLIBERCEPT
     Dosage: EVERY 6 TO 8 WEEKS, BOTH EYES, LAST DOSE
     Route: 031
     Dates: start: 20190916, end: 20190916
  2. EYLEA [Suspect]
     Active Substance: AFLIBERCEPT
     Indication: PRODUCT USED FOR UNKNOWN INDICATION
     Dosage: EVERY 6 TO 8 WEEKS
     Route: 031
     Dates: start: 20180119
  3. EYLEA [Suspect]
     Active Substance: AFLIBERCEPT
     Dosage: EVERY 6 TO 8 WEEKS, LEFT EYE
     Route: 031
     Dates: start: 201904, end: 201904
  4. EYLEA [Suspect]
     Active Substance: AFLIBERCEPT
     Dosage: EVERY 6 TO 8 WEEKS, BOTH EYES
     Route: 031
     Dates: start: 201907, end: 201907
  5. EYLEA [Suspect]
     Active Substance: AFLIBERCEPT
     Dosage: EVERY 6 TO 8 WEEKS, RIGHT EYE
     Route: 031
     Dates: start: 201811, end: 201811

REACTIONS (1)
  - Product dose omission issue [Unknown]
